FAERS Safety Report 21937967 (Version 2)
Quarter: 2023Q1

REPORT INFORMATION
  Report Type: Spontaneous
  Country: US (occurrence: US)
  Receive Date: 20230201
  Receipt Date: 20230220
  Transmission Date: 20230417
  Serious: Yes (Death, Other)
  Sender: FDA-Public Use
  Company Number: US-PFIZER INC-PV202300015511

PATIENT
  Age: 70 Year
  Sex: Male

DRUGS (3)
  1. XELJANZ [Suspect]
     Active Substance: TOFACITINIB CITRATE
     Indication: T-cell prolymphocytic leukaemia
     Dosage: 5 MG
  2. XELJANZ [Suspect]
     Active Substance: TOFACITINIB CITRATE
     Dosage: 10 MG
  3. JAKAFI [Concomitant]
     Active Substance: RUXOLITINIB
     Indication: T-cell prolymphocytic leukaemia
     Dosage: 5 MG, 2X/DAY
     Route: 048

REACTIONS (3)
  - Death [Fatal]
  - T-cell prolymphocytic leukaemia [Unknown]
  - Off label use [Unknown]
